FAERS Safety Report 8472201-7 (Version None)
Quarter: 2012Q2

REPORT INFORMATION
  Report Type: 
  Country: None (occurrence: None)
  Receive Date: 20120627
  Receipt Date: 20120620
  Transmission Date: 20120825
  Serious: Yes (Hospitalization)
  Sender: FDA-Public Use
  Company Number: US-JNJFOC-20120611404

PATIENT
  Age: 76 Year
  Sex: Male
  Weight: 70.31 kg

DRUGS (7)
  1. EXTRA STRENGTH TYLENOL [Suspect]
     Route: 048
  2. AMLODIPINE [Concomitant]
     Indication: HYPERTENSION
     Route: 065
  3. PLAVIX [Concomitant]
     Indication: CARDIAC DISORDER
     Route: 065
  4. SIMVASTATIN [Concomitant]
     Indication: BLOOD CHOLESTEROL INCREASED
     Route: 065
  5. EXTRA STRENGTH TYLENOL [Suspect]
     Indication: TOOTHACHE
     Dosage: 2 CAPLETS EVERY 4-6 HOURS, 4 CAPLETS ON 09-JUN-2012 AND 2 CAPLETS ON 10-JUN-2012
     Route: 048
     Dates: start: 20120609, end: 20120610
  6. ASPIRIN [Concomitant]
     Indication: CARDIAC DISORDER
     Route: 065
  7. METOPROLOL TARTRATE [Concomitant]
     Indication: HYPERTENSION
     Route: 065

REACTIONS (2)
  - PRODUCT QUALITY ISSUE [None]
  - VOMITING [None]
